FAERS Safety Report 18752162 (Version 1)
Quarter: 2021Q1

REPORT INFORMATION
  Report Type: Spontaneous
  Country: US (occurrence: US)
  Receive Date: 20210118
  Receipt Date: 20210118
  Transmission Date: 20210419
  Serious: No
  Sender: FDA-Public Use
  Company Number: US-FOUNDATIONCONSUMERHC-2020-US-020670

PATIENT
  Age: 40 Year
  Sex: Female
  Weight: 86.18 kg

DRUGS (5)
  1. FLONASE [Concomitant]
     Active Substance: FLUTICASONE PROPIONATE
  2. VITAMIN B [Concomitant]
     Active Substance: VITAMIN B
  3. TAKE ACTION [Suspect]
     Active Substance: LEVONORGESTREL
     Indication: CONTRACEPTION
     Dosage: 1.5 MG TAKE ACTION ON 14?AUG?2020, 30 OR 31?AUG?2020 AND 10?SEP?2020. AFTERA 1.5MG ON 01?OCT?2020.
     Route: 048
     Dates: start: 20200814, end: 20201001
  4. SPIRONOLACTONE. [Concomitant]
     Active Substance: SPIRONOLACTONE
  5. VITAMIN D [Concomitant]
     Active Substance: VITAMIN D NOS

REACTIONS (10)
  - Product use in unapproved indication [Recovered/Resolved]
  - Abdominal pain lower [Recovered/Resolved]
  - Menstruation delayed [Not Recovered/Not Resolved]
  - Breast tenderness [Recovered/Resolved]
  - Mood swings [Not Recovered/Not Resolved]
  - Vaginal haemorrhage [Recovered/Resolved]
  - Headache [Recovered/Resolved]
  - Abdominal distension [Recovered/Resolved]
  - Menstruation irregular [Not Recovered/Not Resolved]
  - Intentional product misuse [Recovered/Resolved]

NARRATIVE: CASE EVENT DATE: 202008
